FAERS Safety Report 18262151 (Version 1)
Quarter: 2020Q3

REPORT INFORMATION
  Report Type: Spontaneous
  Country: US (occurrence: US)
  Receive Date: 20200914
  Receipt Date: 20200914
  Transmission Date: 20201103
  Serious: Yes (Death, Other)
  Sender: FDA-Public Use
  Company Number: US-ROCHE-2676204

PATIENT
  Sex: Male

DRUGS (1)
  1. AVASTIN [Suspect]
     Active Substance: BEVACIZUMAB
     Indication: PRODUCT USED FOR UNKNOWN INDICATION
     Route: 065
     Dates: start: 20200518

REACTIONS (7)
  - Death [Fatal]
  - Illness [Unknown]
  - Pain in extremity [Unknown]
  - Diarrhoea [Unknown]
  - Back pain [Unknown]
  - Colorectal cancer [Unknown]
  - Dehydration [Unknown]
